FAERS Safety Report 22394963 (Version 1)
Quarter: 2023Q2

REPORT INFORMATION
  Report Type: Spontaneous
  Country: US (occurrence: None)
  Receive Date: 20230531
  Receipt Date: 20230531
  Transmission Date: 20230721
  Serious: No
  Sender: FDA-Public Use
  Company Number: None

PATIENT
  Age: 74 Year
  Sex: Female
  Weight: 44.0 kg

DRUGS (1)
  1. RINVOQ [Suspect]
     Active Substance: UPADACITINIB
     Indication: Rheumatoid arthritis
     Dosage: TAKE 1 TABLET BY MOUTH DAILY  AS DIRECTED        ??THERAPY STOPPED:  ON HOLD?
     Route: 048
     Dates: start: 202303

REACTIONS (4)
  - Herpes zoster [None]
  - Therapy interrupted [None]
  - Post herpetic neuralgia [None]
  - Asthenia [None]
